FAERS Safety Report 20138037 (Version 1)
Quarter: 2021Q4

REPORT INFORMATION
  Report Type: Spontaneous
  Country: DE (occurrence: DE)
  Receive Date: 20211202
  Receipt Date: 20211202
  Transmission Date: 20220303
  Serious: Yes (Other)
  Sender: FDA-Public Use
  Company Number: DE-TEVA-2021-DE-1982742

PATIENT
  Age: 72 Year
  Sex: Female

DRUGS (4)
  1. IPRATROPIUM [Suspect]
     Active Substance: IPRATROPIUM
     Indication: Increased bronchial secretion
     Route: 055
     Dates: start: 2019, end: 2019
  2. IPRATROPIUM [Suspect]
     Active Substance: IPRATROPIUM
     Dosage: 1 DOSAGE FORMS DAILY; 1 DOSAGE FORM IS 1 INHALATION
     Route: 055
     Dates: start: 2021
  3. GINKGO [Concomitant]
     Active Substance: GINKGO
  4. Bad Emser Salz [Concomitant]

REACTIONS (4)
  - Throat tightness [Recovered/Resolved]
  - Cough [Recovered/Resolved]
  - Palpitations [Recovered/Resolved]
  - Laryngeal discomfort [Recovered/Resolved]

NARRATIVE: CASE EVENT DATE: 20210101
